FAERS Safety Report 6140777-0 (Version None)
Quarter: 2009Q2

REPORT INFORMATION
  Report Type: 
  Country: None (occurrence: None)
  Receive Date: 20090402
  Receipt Date: 20090331
  Transmission Date: 20091009
  Serious: Yes (Other)
  Sender: FDA-Public Use
  Company Number: US-PFIZER INC-2005098819

PATIENT
  Sex: Female

DRUGS (7)
  1. PROVERA [Suspect]
     Indication: HORMONE REPLACEMENT THERAPY
     Dosage: 2.5MG, 5MG UNK
     Route: 048
     Dates: start: 19780101, end: 19990101
  2. PROVERA [Suspect]
     Indication: MENOPAUSAL SYMPTOMS
  3. PREMARIN [Suspect]
     Indication: HORMONE REPLACEMENT THERAPY
     Dosage: 1.25 MG, UNK
     Route: 065
     Dates: start: 19780101, end: 19990101
  4. PREMARIN [Suspect]
     Indication: MENOPAUSAL SYMPTOMS
  5. PREMPRO [Suspect]
     Indication: HORMONE REPLACEMENT THERAPY
     Dosage: 0.625/2.5MG UNK
     Dates: start: 19990101, end: 20001001
  6. PREMPRO [Suspect]
     Indication: MENOPAUSAL SYMPTOMS
  7. RELAFEN [Concomitant]
     Indication: ARTHRITIS
     Dosage: UNK
     Dates: start: 19970101, end: 20050401

REACTIONS (1)
  - BREAST CANCER IN SITU [None]
